FAERS Safety Report 4932068-8 (Version None)
Quarter: 2006Q1

REPORT INFORMATION
  Report Type: 
  Country: None (occurrence: None)
  Receive Date: 20060303
  Receipt Date: 20050325
  Transmission Date: 20060701
  Serious: Yes (Hospitalization)
  Sender: FDA-Public Use
  Company Number: PHBS2005JP04362

PATIENT
  Age: 32 Year
  Sex: Female
  Weight: 45 kg

DRUGS (4)
  1. LIDOCAINE [Concomitant]
  2. MIDAZOLAM HCL [Concomitant]
  3. ATP [Concomitant]
  4. REGITINE [Suspect]
     Indication: ABDOMINAL PAIN
     Dosage: 15 MG/DAY
     Route: 065
     Dates: start: 20050223, end: 20050223

REACTIONS (2)
  - DRUG ERUPTION [None]
  - PRURITUS [None]
